FAERS Safety Report 6604266-9 (Version None)
Quarter: 2010Q1

REPORT INFORMATION
  Report Type: 
  Country: None (occurrence: None)
  Receive Date: 20100226
  Receipt Date: 20090914
  Transmission Date: 20100710
  Serious: No
  Sender: FDA-Public Use
  Company Number: A0799115A

PATIENT
  Age: 60 Year
  Sex: Male
  Weight: 95.5 kg

DRUGS (1)
  1. LAMICTAL CD [Suspect]
     Route: 048

REACTIONS (2)
  - DIZZINESS [None]
  - VISUAL IMPAIRMENT [None]
